FAERS Safety Report 25364424 (Version 1)
Quarter: 2025Q2

REPORT INFORMATION
  Report Type: Spontaneous
  Country: CN (occurrence: CN)
  Receive Date: 20250527
  Receipt Date: 20250527
  Transmission Date: 20250716
  Serious: Yes (Hospitalization)
  Sender: PFIZER
  Company Number: CN-PFIZER INC-PV202500062637

PATIENT
  Age: 62 Year
  Sex: Male
  Weight: 75 kg

DRUGS (6)
  1. CEFOPERAZONE SODIUM\SULBACTAM SODIUM [Suspect]
     Active Substance: CEFOPERAZONE SODIUM\SULBACTAM SODIUM
     Indication: Intracranial infection
     Dosage: 3 G, 3X/DAY
     Route: 041
     Dates: start: 20250506, end: 20250510
  2. CEFOPERAZONE SODIUM\SULBACTAM SODIUM [Suspect]
     Active Substance: CEFOPERAZONE SODIUM\SULBACTAM SODIUM
     Indication: Pneumonia
  3. LINEZOLID [Suspect]
     Active Substance: LINEZOLID
     Indication: Intracranial infection
     Dosage: 0.6 G, 2X/DAY
     Route: 041
     Dates: start: 20250508, end: 20250510
  4. LINEZOLID [Suspect]
     Active Substance: LINEZOLID
     Indication: Pneumonia
  5. VORICONAZOLE [Concomitant]
     Active Substance: VORICONAZOLE
     Indication: Intracranial infection
     Dosage: 0.2 G, 2X/DAY
     Route: 048
     Dates: start: 20250507, end: 20250513
  6. VORICONAZOLE [Concomitant]
     Active Substance: VORICONAZOLE
     Indication: Pneumonia

REACTIONS (5)
  - Rash [Recovering/Resolving]
  - Macule [Recovering/Resolving]
  - Pruritus [Recovering/Resolving]
  - Drug eruption [Recovering/Resolving]
  - Off label use [Unknown]

NARRATIVE: CASE EVENT DATE: 20250506
